FAERS Safety Report 9928680 (Version 10)
Quarter: 2014Q3

REPORT INFORMATION
  Report Type: Spontaneous
  Country: IT (occurrence: None)
  Receive Date: 20140225
  Receipt Date: 20140825
  Transmission Date: 20150326
  Serious: Yes (Hospitalization, Other)
  Sender: FDA-Public Use
  Company Number: 2014IT003034

PATIENT
  Age: 78 Year
  Sex: Male
  Weight: 65 kg

DRUGS (5)
  1. CANRENONE (CANRENONE) [Concomitant]
  2. ALLOPURINOL (ALLOPURINOL) [Concomitant]
     Active Substance: ALLOPURINOL
  3. CALCIUM (CALCIUM) [Concomitant]
     Active Substance: CALCIUM
  4. FUROSEMIDE (FUROSEMIDE) [Concomitant]
     Active Substance: FUROSEMIDE
  5. PONATINIB [Suspect]
     Active Substance: PONATINIB
     Indication: CHRONIC MYELOID LEUKAEMIA
     Route: 048
     Dates: start: 20110706, end: 20140212

REACTIONS (10)
  - Toe amputation [None]
  - Blood calcium decreased [None]
  - Mental impairment [None]
  - Polyuria [None]
  - Confusional state [None]
  - General physical health deterioration [None]
  - Hyperglycaemia [None]
  - Blood phosphorus decreased [None]
  - Chronic obstructive pulmonary disease [None]
  - Necrosis ischaemic [None]

NARRATIVE: CASE EVENT DATE: 20140131
